FAERS Safety Report 6731979-0 (Version None)
Quarter: 2010Q2

REPORT INFORMATION
  Report Type: 
  Country: None (occurrence: None)
  Receive Date: 20100519
  Receipt Date: 20100506
  Transmission Date: 20101027
  Serious: Yes (Hospitalization)
  Sender: FDA-Public Use
  Company Number: PHHY2010DK29032

PATIENT
  Sex: Male
  Weight: 182 kg

DRUGS (8)
  1. ACLASTA [Suspect]
     Indication: OSTEOPOROSIS
     Dosage: 5 MG PER ANNUM
     Route: 042
     Dates: start: 20100325
  2. FURIX [Concomitant]
     Indication: MYOCARDIAL ISCHAEMIA
     Dosage: 40 MG, QD
     Route: 048
  3. KALEORID [Concomitant]
     Dosage: 750 DF, QD
     Route: 048
  4. PRAVASTATIN [Concomitant]
     Indication: HYPERCHOLESTEROLAEMIA
     Dosage: 40 MG, UNK
     Route: 048
  5. KININ [Concomitant]
     Indication: MUSCLE SPASMS
     Dosage: 100 DF, UNK
     Route: 048
  6. CORODIL [Concomitant]
     Indication: MYOCARDIAL ISCHAEMIA
     Dosage: 10 MG, BID
     Route: 048
  7. BETA-LACTAM ANTIBACTERIALS, PENICILLINS [Concomitant]
  8. MINDIAB [Concomitant]
     Indication: DIABETES MELLITUS
     Dosage: 2.5 MG, BID

REACTIONS (3)
  - BUNDLE BRANCH BLOCK LEFT [None]
  - CHEST PAIN [None]
  - CHILLS [None]
